FAERS Safety Report 7089628-0 (Version None)
Quarter: 2010Q4

REPORT INFORMATION
  Report Type: 
  Country: None (occurrence: None)
  Receive Date: 20101108
  Receipt Date: 20101026
  Transmission Date: 20110411
  Serious: Yes (Hospitalization)
  Sender: FDA-Public Use
  Company Number: IT-ELI_LILLY_AND_COMPANY-IT201010006269

PATIENT
  Sex: Female

DRUGS (12)
  1. ALIMTA [Suspect]
     Indication: LUNG ADENOCARCINOMA STAGE IV
     Dosage: 700 MG, TOTAL
     Route: 042
     Dates: start: 20100914, end: 20100914
  2. ALIMTA [Suspect]
     Dosage: UNK, UNKNOWN
     Route: 065
     Dates: start: 20101005
  3. CISPLATIN [Concomitant]
     Indication: LUNG ADENOCARCINOMA STAGE IV
     Dosage: 110 MG, TOTAL
     Route: 042
     Dates: start: 20100914, end: 20100914
  4. MORPHINE SULFATE [Concomitant]
     Indication: PAIN
     Dosage: 30 MG, DAILY (1/D)
     Route: 048
     Dates: start: 20100915, end: 20100922
  5. PALONOSETRON [Concomitant]
     Indication: PROPHYLAXIS OF NAUSEA AND VOMITING
     Dosage: 250 UG, UNKNOWN
     Route: 042
     Dates: start: 20100914, end: 20100914
  6. APREPITANT [Concomitant]
     Indication: PROPHYLAXIS OF NAUSEA AND VOMITING
     Dosage: 125 MG, UNKNOWN
     Route: 048
     Dates: start: 20100914, end: 20100914
  7. DEXAMETHASONE [Concomitant]
     Indication: PROPHYLAXIS
     Dosage: 12 MG, UNKNOWN
     Route: 042
     Dates: start: 20100914, end: 20100914
  8. RANITIDINE [Concomitant]
     Indication: PROPHYLAXIS
     Dosage: 50 MG, UNKNOWN
     Route: 042
     Dates: start: 20100914, end: 20100914
  9. VITAMIN D3 [Concomitant]
     Dosage: 500 MG, UNKNOWN
     Route: 048
  10. FOLIC ACID [Concomitant]
     Dosage: UNK, UNKNOWN
     Route: 048
  11. SERETIDE [Concomitant]
     Dosage: UNK, UNKNOWN
     Route: 055
  12. ESOMEPRAZOLE MAGNESIUM [Concomitant]
     Dosage: 40 MG, UNKNOWN
     Route: 048

REACTIONS (5)
  - ASTHENIA [None]
  - CONSTIPATION [None]
  - DECREASED APPETITE [None]
  - HYPONATRAEMIA [None]
  - THROMBOCYTOPENIA [None]
